FAERS Safety Report 5708948-2 (Version None)
Quarter: 2008Q2

REPORT INFORMATION
  Report Type: 
  Country: None (occurrence: None)
  Receive Date: 20080414
  Receipt Date: 20080414
  Transmission Date: 20081010
  Serious: Yes (Life-Threatening, Hospitalization)
  Sender: FDA-Public Use
  Company Number: None

PATIENT
  Age: 61 Year
  Sex: Male

DRUGS (1)
  1. LISINOPRIL [Suspect]
     Dosage: 20MG DAILY PO
     Route: 048

REACTIONS (4)
  - ANGIOEDEMA [None]
  - DYSPNOEA [None]
  - LOCAL SWELLING [None]
  - SWOLLEN TONGUE [None]
